FAERS Safety Report 9521986 (Version 1)
Quarter: 2013Q1

REPORT INFORMATION
  Report Type: Spontaneous
  Country: US (occurrence: None)
  Receive Date: 20130305
  Receipt Date: 20130305
  Transmission Date: 20140127
  Serious: Yes (Other)
  Sender: FDA-Public Use
  Company Number: 163-21880-12080349

PATIENT
  Age: 68 Year
  Sex: Female
  Weight: 78.93 kg

DRUGS (6)
  1. REVLIMID [Suspect]
     Indication: PLASMA CELL MYELOMA
     Dosage: 21 IN 21 D
     Route: 048
     Dates: start: 2009
  2. ASPIRIN [Concomitant]
  3. DEXAMETHASONE [Concomitant]
  4. LOSARTAN [Concomitant]
  5. VITAMIN D [Concomitant]
  6. POTASSIUM [Concomitant]

REACTIONS (2)
  - Muscle spasms [None]
  - Blood potassium decreased [None]
